FAERS Safety Report 6793262-7 (Version None)
Quarter: 2010Q2

REPORT INFORMATION
  Report Type: 
  Country: None (occurrence: None)
  Receive Date: 20100624
  Receipt Date: 20091008
  Transmission Date: 20101027
  Serious: No
  Sender: FDA-Public Use
  Company Number: US-MYLANLABS-2009S1017600

PATIENT
  Sex: Female

DRUGS (4)
  1. CLOZAPINE [Suspect]
     Indication: SCHIZOPHRENIA, PARANOID TYPE
     Route: 048
  2. HALDOL [Concomitant]
  3. ATENOLOL [Concomitant]
  4. LORAZEPAM [Concomitant]

REACTIONS (4)
  - CHEST PAIN [None]
  - FEAR [None]
  - FEELING ABNORMAL [None]
  - HEADACHE [None]
